FAERS Safety Report 7018436-1 (Version None)
Quarter: 2010Q3

REPORT INFORMATION
  Report Type: 
  Country: None (occurrence: None)
  Receive Date: 20100928
  Receipt Date: 20100921
  Transmission Date: 20110219
  Serious: Yes (Hospitalization, Other)
  Sender: FDA-Public Use
  Company Number: US-SANOFI-AVENTIS-2010SA054070

PATIENT
  Age: 74 Year
  Sex: Female
  Weight: 90.7 kg

DRUGS (3)
  1. LANTUS [Suspect]
     Indication: TYPE 2 DIABETES MELLITUS
     Dosage: 25 U IN AM22 U HS
     Route: 058
  2. OPTICLICK [Suspect]
  3. GLUCOPHAGE [Concomitant]

REACTIONS (2)
  - CATARACT [None]
  - INTERVERTEBRAL DISC OPERATION [None]
